FAERS Safety Report 18973640 (Version 1)
Quarter: 2021Q1

REPORT INFORMATION
  Report Type: Spontaneous
  Country: US (occurrence: US)
  Receive Date: 20210305
  Receipt Date: 20210305
  Transmission Date: 20210420
  Serious: Yes (Other)
  Sender: FDA-Public Use
  Company Number: NVSC2021US050840

PATIENT
  Sex: Female

DRUGS (1)
  1. CARBOPLATIN. [Suspect]
     Active Substance: CARBOPLATIN
     Indication: SQUAMOUS CELL CARCINOMA OF THE VULVA
     Dosage: UNK
     Route: 062

REACTIONS (3)
  - Malignant neoplasm progression [Unknown]
  - Squamous cell carcinoma of the vulva [Unknown]
  - Product use in unapproved indication [Unknown]
